FAERS Safety Report 13039668 (Version 1)
Quarter: 2016Q4

REPORT INFORMATION
  Report Type: Spontaneous
  Country: US (occurrence: US)
  Receive Date: 20161219
  Receipt Date: 20161219
  Transmission Date: 20170207
  Serious: Yes (Other)
  Sender: FDA-Public Use
  Company Number: US-TEVA-721342USA

PATIENT
  Sex: Female

DRUGS (1)
  1. COPAXONE [Suspect]
     Active Substance: GLATIRAMER ACETATE
     Indication: MULTIPLE SCLEROSIS
     Dosage: UNKNOWN FORM STRENGTH
     Dates: start: 2016

REACTIONS (5)
  - Injection site pain [Unknown]
  - Injection site pruritus [Unknown]
  - Drug ineffective [Unknown]
  - Multiple sclerosis [Unknown]
  - Injection site mass [Unknown]

NARRATIVE: CASE EVENT DATE: 2016
